FAERS Safety Report 9908430 (Version 2)
Quarter: 2014Q1

REPORT INFORMATION
  Report Type: Spontaneous
  Country: JP (occurrence: JP)
  Receive Date: 20140219
  Receipt Date: 20140224
  Transmission Date: 20141002
  Serious: Yes (Other)
  Sender: FDA-Public Use
  Company Number: JP-MALLINCKRODT-T201401176

PATIENT
  Age: 66 Year
  Sex: Female
  Weight: 46 kg

DRUGS (1)
  1. OPTIRAY [Suspect]
     Indication: COMPUTERISED TOMOGRAM
     Dosage: 90 ML, SINGLE, 100 ML PREFILLED SYRINGE
     Route: 042
     Dates: start: 20140203, end: 20140203

REACTIONS (2)
  - Blood pressure decreased [Recovered/Resolved]
  - Rash [Recovered/Resolved]
